FAERS Safety Report 16098875 (Version 2)
Quarter: 2020Q1

REPORT INFORMATION
  Report Type: Spontaneous
  Country: US (occurrence: US)
  Receive Date: 20190321
  Receipt Date: 20200106
  Transmission Date: 20200409
  Serious: No
  Sender: FDA-Public Use
  Company Number: US-PFIZER INC-2019115290

PATIENT
  Age: 67 Year
  Sex: Female
  Weight: 65.77 kg

DRUGS (4)
  1. RAPAMUNE [Suspect]
     Active Substance: SIROLIMUS
     Dosage: 1 MG, EVERY THIRD(TAKE ONE TABLET THEN WAIT TWO DAYS AND TAKE ANOTHER ONE)
     Route: 048
     Dates: start: 2009
  2. LOSARTAN. [Concomitant]
     Active Substance: LOSARTAN
     Indication: BLOOD PRESSURE ABNORMAL
     Dosage: 50 MG, 2X/DAY [IN MORNING AND ONE IN EVENING ]
     Route: 048
  3. CELLCEPT [Concomitant]
     Active Substance: MYCOPHENOLATE MOFETIL\MYCOPHENOLATE MOFETIL HYDROCHLORIDE
     Indication: RENAL TRANSPLANT
     Dosage: 500 MG, 2X/DAY
     Route: 048
     Dates: start: 2008
  4. LANTUS [Concomitant]
     Active Substance: INSULIN GLARGINE
     Indication: DIABETES MELLITUS
     Dosage: 29 IU, 1X/DAY [29 UNITS. ONCE A DAY]
     Dates: start: 2008

REACTIONS (1)
  - Renal disorder [Unknown]
